FAERS Safety Report 8559745-4 (Version None)
Quarter: 2012Q3

REPORT INFORMATION
  Report Type: 
  Country: None (occurrence: None)
  Receive Date: 20120802
  Receipt Date: 20120726
  Transmission Date: 20120928
  Serious: No
  Sender: FDA-Public Use
  Company Number: US-PFIZER INC-2012182763

PATIENT
  Sex: Female
  Weight: 62.585 kg

DRUGS (3)
  1. ATENOLOL [Suspect]
     Indication: TACHYCARDIA
     Dosage: 25MG TABLET SPLIT INTO A HALF
  2. XALATAN [Suspect]
     Indication: GLAUCOMA
     Dosage: UNK, DAILY
  3. ATENOLOL [Suspect]
     Dosage: SPLITTING 25 MG TABLET INTO A ONE QUARTER, 2X/DAY

REACTIONS (3)
  - FEELING ABNORMAL [None]
  - INCORRECT DOSE ADMINISTERED [None]
  - MALAISE [None]
